FAERS Safety Report 8226795-7 (Version None)
Quarter: 2012Q1

REPORT INFORMATION
  Report Type: 
  Country: None (occurrence: None)
  Receive Date: 20120322
  Receipt Date: 20120319
  Transmission Date: 20120608
  Serious: Yes (Death, Hospitalization)
  Sender: FDA-Public Use
  Company Number: IT-BAYER-2012-026809

PATIENT

DRUGS (5)
  1. NEXAVAR [Suspect]
     Indication: HEPATIC NEOPLASM MALIGNANT
     Dosage: 400 MG, DAILY
     Route: 048
     Dates: start: 20120108, end: 20120128
  2. AMOXICILLIN [Concomitant]
     Dosage: 2 G, DAILY
     Route: 048
     Dates: start: 20120112, end: 20120120
  3. LEVOFLOXACIN [Concomitant]
     Dosage: 500 MG, DAILY
     Route: 048
     Dates: start: 20120105, end: 20120112
  4. CEFTRIAXONE [Concomitant]
     Dosage: 1 G, DAILY
     Route: 030
     Dates: start: 20120112, end: 20120122
  5. CORTONE [Concomitant]
     Dosage: 25 MG, DAILY
     Route: 048
     Dates: start: 20101109

REACTIONS (2)
  - JAUNDICE [None]
  - HEPATITIS ACUTE [None]
